FAERS Safety Report 17880051 (Version 17)
Quarter: 2022Q4

REPORT INFORMATION
  Report Type: Report from Study
  Country: US (occurrence: US)
  Receive Date: 20200610
  Receipt Date: 20221011
  Transmission Date: 20230113
  Serious: Yes (Hospitalization, Other)
  Sender: FDA-Public Use
  Company Number: US-SHIRE-US202018917

PATIENT
  Sex: Female
  Weight: 121 kg

DRUGS (49)
  1. HUMAN IMMUNOGLOBULIN G [Suspect]
     Active Substance: HUMAN IMMUNOGLOBULIN G
     Indication: Immunodeficiency common variable
     Dosage: 30 GRAM, Q2WEEKS
     Route: 058
     Dates: start: 20180329
  2. HUMAN IMMUNOGLOBULIN G [Suspect]
     Active Substance: HUMAN IMMUNOGLOBULIN G
     Indication: Primary immunodeficiency syndrome
     Dosage: 30 GRAM, Q2WEEKS
     Route: 065
  3. HUMAN IMMUNOGLOBULIN G [Suspect]
     Active Substance: HUMAN IMMUNOGLOBULIN G
     Dosage: 30 GRAM, Q2WEEKS
     Route: 058
     Dates: start: 20180402
  4. ADDERALL [Concomitant]
     Active Substance: AMPHETAMINE ASPARTATE\AMPHETAMINE SULFATE\DEXTROAMPHETAMINE SACCHARATE\DEXTROAMPHETAMINE SULFATE
     Dosage: UNK
     Route: 065
  5. ACETAMINOPHEN [Concomitant]
     Active Substance: ACETAMINOPHEN
     Dosage: UNK
     Route: 065
  6. DIPHENHYDRAMINE [Concomitant]
     Active Substance: DIPHENHYDRAMINE
     Dosage: UNK
     Route: 065
  7. LIDOCAINE [Concomitant]
     Active Substance: LIDOCAINE
     Dosage: UNK
     Route: 065
  8. EPINEPHRINE [Concomitant]
     Active Substance: EPINEPHRINE
     Dosage: UNK
     Route: 065
  9. ATORVASTATIN CALCIUM [Concomitant]
     Active Substance: ATORVASTATIN CALCIUM
     Dosage: UNK
     Route: 065
  10. MUCUS RELIEF DM [Concomitant]
     Active Substance: DEXTROMETHORPHAN HYDROBROMIDE\GUAIFENESIN
     Dosage: UNK
     Route: 065
  11. WOMENS MULTI ONE A DAY [Concomitant]
     Dosage: UNK
     Route: 065
  12. VITAMIN D3 [Concomitant]
     Active Substance: CHOLECALCIFEROL
     Dosage: UNK
     Route: 065
  13. FISH OIL [Concomitant]
     Active Substance: FISH OIL
     Dosage: UNK
     Route: 065
  14. METOPROLOL TARTRATE [Concomitant]
     Active Substance: METOPROLOL TARTRATE
     Dosage: UNK
     Route: 065
  15. FLONASE [Concomitant]
     Active Substance: FLUTICASONE PROPIONATE
     Dosage: UNK
     Route: 065
  16. KETOCONAZOLE [Concomitant]
     Active Substance: KETOCONAZOLE
     Dosage: UNK
     Route: 065
  17. LISINOPRIL [Concomitant]
     Active Substance: LISINOPRIL
     Dosage: UNK
     Route: 065
  18. ACETAMINOPHEN\HYDROCODONE [Concomitant]
     Active Substance: ACETAMINOPHEN\HYDROCODONE
     Dosage: UNK
     Route: 065
  19. ESCITALOPRAM OXALATE [Concomitant]
     Active Substance: ESCITALOPRAM OXALATE
     Dosage: UNK
     Route: 065
  20. PROCHLORPERAZINE MALEATE [Concomitant]
     Active Substance: PROCHLORPERAZINE MALEATE
     Dosage: UNK
     Route: 065
  21. LORAZEPAM [Concomitant]
     Active Substance: LORAZEPAM
     Dosage: UNK
     Route: 065
  22. ASPIRIN [Concomitant]
     Active Substance: ASPIRIN
     Dosage: UNK
     Route: 065
  23. BUPROPION HYDROCHLORIDE [Concomitant]
     Active Substance: BUPROPION HYDROCHLORIDE
     Dosage: UNK
     Route: 065
  24. FOLIC ACID [Concomitant]
     Active Substance: FOLIC ACID
     Dosage: UNK
     Route: 065
  25. AMLODIPINE BESYLATE [Concomitant]
     Active Substance: AMLODIPINE BESYLATE
     Dosage: UNK
     Route: 065
  26. ALPRAZOLAM [Concomitant]
     Active Substance: ALPRAZOLAM
     Dosage: UNK
     Route: 065
  27. LORATADINE [Concomitant]
     Active Substance: LORATADINE
     Dosage: UNK
     Route: 065
  28. IRON [Concomitant]
     Active Substance: IRON
     Dosage: UNK
     Route: 065
  29. AFRIN [Concomitant]
     Active Substance: OXYMETAZOLINE
     Dosage: UNK
     Route: 065
  30. CINNAMON [Concomitant]
     Active Substance: CINNAMON
     Dosage: UNK
     Route: 065
  31. METFORMIN HYDROCHLORIDE [Concomitant]
     Active Substance: METFORMIN HYDROCHLORIDE
     Dosage: UNK
     Route: 065
  32. DICYCLOMINE HYDROCHLORIDE [Concomitant]
     Active Substance: DICYCLOMINE HYDROCHLORIDE
     Dosage: UNK
     Route: 065
  33. ESTRADIOL [Concomitant]
     Active Substance: ESTRADIOL
     Dosage: UNK
     Route: 065
  34. ALBUTEROL SULFATE [Concomitant]
     Active Substance: ALBUTEROL SULFATE
     Dosage: UNK
     Route: 065
  35. DICLOFENAC SODIUM [Concomitant]
     Active Substance: DICLOFENAC SODIUM
     Dosage: UNK
     Route: 065
  36. CYCLOBENZAPRINE HYDROCHLORIDE [Concomitant]
     Active Substance: CYCLOBENZAPRINE HYDROCHLORIDE
     Dosage: UNK
     Route: 065
  37. VITAMIN B12 [Concomitant]
     Active Substance: CYANOCOBALAMIN
     Dosage: UNK
     Route: 065
  38. VITAMINS [Concomitant]
     Active Substance: VITAMINS
     Dosage: UNK
     Route: 065
  39. LEXAPRO [Concomitant]
     Active Substance: ESCITALOPRAM OXALATE
     Dosage: UNK
     Route: 065
  40. TRULICITY [Concomitant]
     Active Substance: DULAGLUTIDE
     Dosage: UNK
     Route: 065
  41. NORCO [Concomitant]
     Active Substance: ACETAMINOPHEN\HYDROCODONE BITARTRATE
     Dosage: UNK
     Route: 065
  42. SILYBUM MARIANUM;VACCINIUM MACROCARPON [Concomitant]
     Dosage: UNK
     Route: 065
  43. AMOXIL [Concomitant]
     Active Substance: AMOXICILLIN
     Dosage: UNK
     Route: 065
  44. MOTRIN [Concomitant]
     Active Substance: IBUPROFEN
     Dosage: UNK
     Route: 065
  45. METOPROLOL SUCCINATE [Concomitant]
     Active Substance: METOPROLOL SUCCINATE
     Route: 065
  46. ACETAMINOPHEN [Concomitant]
     Active Substance: ACETAMINOPHEN
     Route: 065
  47. FLUTICASONE PROPIONATE [Concomitant]
     Active Substance: FLUTICASONE PROPIONATE
     Dosage: UNK
     Route: 065
  48. Liver + kidney cleanser [Concomitant]
     Dosage: UNK
     Route: 065
  49. TYLENOL [Concomitant]
     Active Substance: ACETAMINOPHEN

REACTIONS (74)
  - Respiratory tract infection [Unknown]
  - Renal impairment [Unknown]
  - Blood pressure increased [Unknown]
  - Hernia [Unknown]
  - Dehydration [Unknown]
  - Blood potassium decreased [Unknown]
  - Stress [Unknown]
  - Cluster headache [Unknown]
  - Migraine [Unknown]
  - COVID-19 [Recovered/Resolved]
  - Abnormal dreams [Unknown]
  - Drug interaction [Unknown]
  - Laryngitis [Unknown]
  - Dysphagia [Unknown]
  - Abdominal hernia [Unknown]
  - Blood pressure abnormal [Unknown]
  - Viral infection [Unknown]
  - Infusion related reaction [Unknown]
  - Infusion related hypersensitivity reaction [Unknown]
  - Sinusitis [Unknown]
  - Euphoric mood [Unknown]
  - Hypoaesthesia eye [Unknown]
  - Respiratory disorder [Unknown]
  - Urinary tract infection [Unknown]
  - Cold urticaria [Recovered/Resolved]
  - Multiple allergies [Unknown]
  - Tooth infection [Unknown]
  - Gastrointestinal disorder [Unknown]
  - Gastritis [Unknown]
  - Depression [Unknown]
  - Cystitis [Unknown]
  - Frustration tolerance decreased [Unknown]
  - Feeling abnormal [Unknown]
  - Condition aggravated [Unknown]
  - Fungal infection [Unknown]
  - Gait disturbance [Unknown]
  - Obstruction [Unknown]
  - Weight decreased [Unknown]
  - Memory impairment [Unknown]
  - Pharyngeal swelling [Unknown]
  - Illness [Unknown]
  - Blood glucose increased [Unknown]
  - Throat tightness [Recovered/Resolved]
  - Nasopharyngitis [Unknown]
  - Post-acute COVID-19 syndrome [Unknown]
  - Gait inability [Unknown]
  - Seasonal allergy [Unknown]
  - Chronic sinusitis [Not Recovered/Not Resolved]
  - Infusion site nodule [Unknown]
  - Asthenia [Not Recovered/Not Resolved]
  - Nasal congestion [Unknown]
  - Lymphadenopathy [Unknown]
  - Dyspepsia [Unknown]
  - Eczema [Unknown]
  - Infusion site haemorrhage [Unknown]
  - Influenza like illness [Not Recovered/Not Resolved]
  - Hypersensitivity [Unknown]
  - Infusion site mass [Unknown]
  - Malaise [Unknown]
  - Pain in extremity [Unknown]
  - Cough [Unknown]
  - Infusion site extravasation [Unknown]
  - Infusion site oedema [Unknown]
  - Dyspnoea [Unknown]
  - Infusion site bruising [Unknown]
  - Pain [Unknown]
  - Infusion site erythema [Unknown]
  - Fatigue [Unknown]
  - Infusion site pain [Unknown]
  - Nausea [Not Recovered/Not Resolved]
  - Infusion site injury [Unknown]
  - Muscle injury [Unknown]
  - Chronic sinusitis [Unknown]
  - Skin infection [Unknown]
